FAERS Safety Report 12595113 (Version 2)
Quarter: 2016Q3

REPORT INFORMATION
  Report Type: Spontaneous
  Country: IT (occurrence: IT)
  Receive Date: 20160726
  Receipt Date: 20160803
  Transmission Date: 20161109
  Serious: Yes (Life-Threatening)
  Sender: FDA-Public Use
  Company Number: IT-009507513-1607ITA006058

PATIENT
  Age: 61 Year
  Sex: Male
  Weight: 77 kg

DRUGS (3)
  1. DAKLINZA [Concomitant]
     Active Substance: DACLATASVIR
     Dosage: 1 DOSE UNIT
     Route: 048
     Dates: start: 20160129, end: 201604
  2. SOVALDI [Concomitant]
     Active Substance: SOFOSBUVIR
     Dosage: 1 DOSE UNIT
     Route: 048
     Dates: start: 20160129, end: 201604
  3. REBETOL [Suspect]
     Active Substance: RIBAVIRIN
     Indication: HEPATITIS C
     Dosage: 800 MG DAILY
     Route: 048
     Dates: start: 20160130, end: 20160305

REACTIONS (2)
  - Cough [Recovered/Resolved]
  - Oesophageal varices haemorrhage [Recovered/Resolved]

NARRATIVE: CASE EVENT DATE: 20160215
